FAERS Safety Report 5990523-6 (Version None)
Quarter: 2008Q4

REPORT INFORMATION
  Report Type: 
  Country: None (occurrence: None)
  Receive Date: 20081211
  Receipt Date: 20081203
  Transmission Date: 20090506
  Serious: Yes (Hospitalization)
  Sender: FDA-Public Use
  Company Number: US-GENENTECH-273001

PATIENT
  Sex: Male

DRUGS (2)
  1. BEVACIZUMAB [Suspect]
     Indication: RENAL CELL CARCINOMA
     Dosage: 5 MG/KG, UNK
     Route: 042
     Dates: start: 20080211
  2. SORAFENIB [Suspect]
     Indication: RENAL CELL CARCINOMA
     Dosage: 200 MG, UNK
     Route: 048
     Dates: start: 20080211

REACTIONS (2)
  - HYPERTENSION [None]
  - PALMAR-PLANTAR ERYTHRODYSAESTHESIA SYNDROME [None]
